FAERS Safety Report 5562966-6 (Version None)
Quarter: 2007Q4

REPORT INFORMATION
  Report Type: 
  Country: None (occurrence: None)
  Receive Date: 20071212
  Receipt Date: 20071212
  Transmission Date: 20080405
  Serious: Yes (Other)
  Sender: FDA-Public Use
  Company Number: None

PATIENT
  Age: 55 Year
  Sex: Female
  Weight: 122.4712 kg

DRUGS (1)
  1. PREGABALIN 150MG [Suspect]
     Indication: DIABETIC NEUROPATHY
     Dosage: 150MG BID PO
     Route: 048
     Dates: start: 20070501, end: 20071121

REACTIONS (4)
  - ASTHMA [None]
  - CONDITION AGGRAVATED [None]
  - NO THERAPEUTIC RESPONSE [None]
  - OEDEMA PERIPHERAL [None]
